FAERS Safety Report 8229699-9 (Version None)
Quarter: 2012Q1

REPORT INFORMATION
  Report Type: 
  Country: None (occurrence: None)
  Receive Date: 20120322
  Receipt Date: 20120301
  Transmission Date: 20120608
  Serious: Yes (Other)
  Sender: FDA-Public Use
  Company Number: JP-ASTRAZENECA-2012SE15568

PATIENT
  Age: 81 Year
  Sex: Male

DRUGS (3)
  1. ANTICANCER DRUG [Suspect]
  2. HALOPERIDOL [Concomitant]
     Route: 048
     Dates: start: 20120111
  3. SEROQUEL [Suspect]
     Route: 048
     Dates: start: 20120111

REACTIONS (2)
  - HYPONATRAEMIA [None]
  - INAPPROPRIATE ANTIDIURETIC HORMONE SECRETION [None]
